FAERS Safety Report 24250934 (Version 1)
Quarter: 2024Q3

REPORT INFORMATION
  Report Type: Spontaneous
  Country: US (occurrence: US)
  Receive Date: 20240826
  Receipt Date: 20240826
  Transmission Date: 20241017
  Serious: No
  Sender: MYLAN
  Company Number: US-MYLANLABS-2024M1077546

PATIENT
  Age: 90 Year
  Sex: Female

DRUGS (1)
  1. LATANOPROST [Suspect]
     Active Substance: LATANOPROST
     Indication: Eye infection
     Dosage: 1 GTT DROPS, QD (ONE DROP FOR EACH EYE)
     Route: 047

REACTIONS (2)
  - Off label use [Unknown]
  - Device issue [Unknown]

NARRATIVE: CASE EVENT DATE: 20240820
